FAERS Safety Report 14676185 (Version 1)
Quarter: 2018Q1

REPORT INFORMATION
  Report Type: Spontaneous
  Country: TW (occurrence: TW)
  Receive Date: 20180323
  Receipt Date: 20180323
  Transmission Date: 20180509
  Serious: Yes (Hospitalization)
  Sender: FDA-Public Use
  Company Number: PHHY2018TW048527

PATIENT
  Age: 55 Year
  Sex: Male
  Weight: 85 kg

DRUGS (1)
  1. TEGRETOL [Suspect]
     Active Substance: CARBAMAZEPINE
     Indication: NEUROPATHY PERIPHERAL
     Dosage: 1 DF, BID
     Route: 048
     Dates: start: 20150313, end: 20150323

REACTIONS (15)
  - Erythema multiforme [Unknown]
  - Lip ulceration [Unknown]
  - Stevens-Johnson syndrome [Unknown]
  - Oropharyngeal pain [Unknown]
  - Pruritus [Unknown]
  - Rash generalised [Unknown]
  - Oral discomfort [Unknown]
  - Pyrexia [Unknown]
  - Pharyngitis [Unknown]
  - Herpes simplex [Unknown]
  - Dysphagia [Recovering/Resolving]
  - Lip erosion [Unknown]
  - Drooling [Recovering/Resolving]
  - Conjunctivitis [Unknown]
  - Paraesthesia oral [Unknown]

NARRATIVE: CASE EVENT DATE: 20150323
